FAERS Safety Report 23165555 (Version 2)
Quarter: 2023Q4

REPORT INFORMATION
  Report Type: Spontaneous
  Country: BE (occurrence: BE)
  Receive Date: 20231109
  Receipt Date: 20231116
  Transmission Date: 20240110
  Serious: Yes (Other)
  Sender: FDA-Public Use
  Company Number: BE-PPDUS-2021ZX000721

PATIENT
  Age: 6 Year
  Sex: Male

DRUGS (10)
  1. FINTEPLA [Suspect]
     Active Substance: FENFLURAMINE
     Indication: Severe myoclonic epilepsy of infancy
     Dosage: 19.5 MILLIGRAM/KILOGRAM
     Route: 048
  2. FINTEPLA [Suspect]
     Active Substance: FENFLURAMINE
     Dosage: 0.13 MILLIGRAM/KILOGRAM
     Route: 048
  3. FINTEPLA [Suspect]
     Active Substance: FENFLURAMINE
     Dosage: 0.12 MILLIGRAM/KILOGRAM
     Route: 048
     Dates: start: 2017, end: 2017
  4. FINTEPLA [Suspect]
     Active Substance: FENFLURAMINE
     Dosage: 0.25 MILLIGRAM/KILOGRAM
     Route: 048
     Dates: start: 2017, end: 2017
  5. FINTEPLA [Suspect]
     Active Substance: FENFLURAMINE
     Dosage: 0.27 MILLIGRAM/KILOGRAM
     Route: 048
  6. VALPROIC ACID [Suspect]
     Active Substance: VALPROIC ACID
     Indication: Seizure
     Dosage: UNK
     Dates: start: 2015
  7. VALPROIC ACID [Suspect]
     Active Substance: VALPROIC ACID
     Dosage: LOWERED WITH 10%
  8. VALPROIC ACID [Suspect]
     Active Substance: VALPROIC ACID
     Dosage: LOWERED ONE MORE
  9. CLOBAZAM [Concomitant]
     Active Substance: CLOBAZAM
     Indication: Product used for unknown indication
     Dosage: UNK
  10. TOPIRAMATE [Concomitant]
     Active Substance: TOPIRAMATE
     Indication: Severe myoclonic epilepsy of infancy
     Dosage: UNK
     Dates: start: 2015

REACTIONS (6)
  - Thrombocytopenia [Not Recovered/Not Resolved]
  - Fatigue [Recovered/Resolved]
  - White blood cell count decreased [Recovered/Resolved]
  - Neutropenia [Recovered/Resolved]
  - Somnolence [Recovered/Resolved]
  - Decreased appetite [Recovered/Resolved]

NARRATIVE: CASE EVENT DATE: 20170101
